FAERS Safety Report 7222932-1 (Version None)
Quarter: 2011Q1

REPORT INFORMATION
  Report Type: 
  Country: None (occurrence: None)
  Receive Date: 20110106
  Receipt Date: 20110106
  Transmission Date: 20110831
  Serious: Yes (Hospitalization)
  Sender: FDA-Public Use
  Company Number: None

PATIENT
  Age: 78 Year
  Sex: Male
  Weight: 120.4 kg

DRUGS (12)
  1. TRAMADOL HCL [Suspect]
     Indication: BACK PAIN
     Dosage: 50MG (1-2) Q6H PRN PO (RECENT)
     Route: 048
  2. VITAMIN D [Concomitant]
  3. CRESTOR [Concomitant]
  4. ASPIRIN [Concomitant]
  5. AMARYL [Concomitant]
  6. POTASSIUM CHLORIDE [Concomitant]
  7. ALEVE [Concomitant]
  8. LASIX [Concomitant]
  9. DILTIAZEM [Concomitant]
  10. METOLAZONE [Concomitant]
  11. LISINOPRIL [Concomitant]
  12. SOTALOL HCL [Concomitant]

REACTIONS (4)
  - SELF-MEDICATION [None]
  - HALLUCINATION [None]
  - INSOMNIA [None]
  - DELIRIUM [None]
